FAERS Safety Report 9282435 (Version 1)
Quarter: 2013Q2

REPORT INFORMATION
  Report Type: Report from Study
  Country: FR (occurrence: FR)
  Receive Date: 20130510
  Receipt Date: 20130510
  Transmission Date: 20140414
  Serious: Yes (Disabling)
  Sender: FDA-Public Use
  Company Number: FR-ROCHE-1222061

PATIENT
  Age: 49 Year
  Sex: Female
  Weight: 49 kg

DRUGS (5)
  1. BEVACIZUMAB [Suspect]
     Indication: BREAST CANCER
     Route: 042
     Dates: start: 20090424, end: 20101018
  2. TRASTUZUMAB [Suspect]
     Indication: BREAST CANCER
     Route: 042
     Dates: start: 20090717, end: 20101018
  3. EXEMESTANE [Concomitant]
     Indication: ADJUVANT THERAPY
     Route: 048
     Dates: start: 201105, end: 20130411
  4. TAMOXIFENE [Concomitant]
     Indication: ADJUVANT THERAPY
     Route: 048
     Dates: start: 20130411
  5. LETROZOLE [Concomitant]
     Indication: ADJUVANT THERAPY
     Route: 048
     Dates: start: 20110101, end: 201105

REACTIONS (1)
  - Tooth loss [Not Recovered/Not Resolved]
